FAERS Safety Report 25571501 (Version 2)
Quarter: 2025Q3

REPORT INFORMATION
  Report Type: Report from Study
  Country: US (occurrence: US)
  Receive Date: 20250717
  Receipt Date: 20250901
  Transmission Date: 20251020
  Serious: Yes (Other)
  Sender: ACADIA PHARMACEUTICALS
  Company Number: US-ACADIA PHARMACEUTICALS INC.-ACA-2025-PIM-008326

PATIENT
  Age: 60 Year
  Sex: Female

DRUGS (26)
  1. NUPLAZID [Suspect]
     Active Substance: PIMAVANSERIN TARTRATE
     Indication: Parkinson^s disease psychosis
     Dosage: 34 MILLIGRAM, QD
     Route: 048
  2. NUPLAZID [Suspect]
     Active Substance: PIMAVANSERIN TARTRATE
     Dosage: 34 MILLIGRAM, QD
     Route: 048
     Dates: start: 20250725
  3. ALBUTEROL SULFATE [Concomitant]
     Active Substance: ALBUTEROL SULFATE
  4. ALBUTEROL [Concomitant]
     Active Substance: ALBUTEROL
  5. ALISKIREN [Concomitant]
     Active Substance: ALISKIREN
  6. AMLODIPINE [Concomitant]
     Active Substance: AMLODIPINE BESYLATE
  7. ASPIRIN [Concomitant]
     Active Substance: ASPIRIN
  8. BREO ELLIPTA [Concomitant]
     Active Substance: FLUTICASONE FUROATE\VILANTEROL TRIFENATATE
  9. SINEMET CR [Concomitant]
     Active Substance: CARBIDOPA\LEVODOPA
  10. CARVEDILOL [Concomitant]
     Active Substance: CARVEDILOL
  11. CETIRIZINE [Concomitant]
     Active Substance: CETIRIZINE HYDROCHLORIDE
  12. ESCITALOPRAM [Concomitant]
     Active Substance: ESCITALOPRAM OXALATE
  13. ESTRADIOL [Concomitant]
     Active Substance: ESTRADIOL
  14. FLUTICASONE [Concomitant]
     Active Substance: FLUTICASONE
  15. FUROSEMIDE [Concomitant]
     Active Substance: FUROSEMIDE
  16. LORAZEPAM [Concomitant]
     Active Substance: LORAZEPAM
  17. HYOPHEN [ATROPA BELLA-DONNA EXTRACT;HYOSCYAMUS NIGER DRY EXTRACT;PHENO [Concomitant]
  18. BIFIDOBACTERIUM SPP.\LACTOBACILLUS ACIDOPHILUS [Concomitant]
     Active Substance: BIFIDOBACTERIUM SPP.\LACTOBACILLUS ACIDOPHILUS
  19. MIRABEGRON [Concomitant]
     Active Substance: MIRABEGRON
  20. NITROGLYCERIN [Concomitant]
     Active Substance: NITROGLYCERIN
  21. OMEPRAZOLE [Concomitant]
     Active Substance: OMEPRAZOLE
  22. REPATHA [Concomitant]
     Active Substance: EVOLOCUMAB
  23. NURTEC ODT [Concomitant]
     Active Substance: RIMEGEPANT SULFATE
  24. VALACYCLOVIR [Concomitant]
     Active Substance: VALACYCLOVIR HYDROCHLORIDE
  25. BACLOFEN [Concomitant]
     Active Substance: BACLOFEN
  26. MONTELUKAST [Concomitant]
     Active Substance: MONTELUKAST

REACTIONS (3)
  - Hallucination, visual [Not Recovered/Not Resolved]
  - Hallucination [Not Recovered/Not Resolved]
  - Nausea [Recovering/Resolving]

NARRATIVE: CASE EVENT DATE: 20250725
